FAERS Safety Report 17036294 (Version 1)
Quarter: 2019Q4

REPORT INFORMATION
  Report Type: Spontaneous
  Country: BR (occurrence: BR)
  Receive Date: 20191115
  Receipt Date: 20191115
  Transmission Date: 20200122
  Serious: Yes (Disabling, Other)
  Sender: FDA-Public Use
  Company Number: NVSC2019BR017005

PATIENT
  Sex: Male

DRUGS (5)
  1. ORTHODEX [Concomitant]
     Indication: OSTEOPOROSIS
     Dosage: 1 DF, QD
     Route: 048
  2. RANITIDINE. [Suspect]
     Active Substance: RANITIDINE
     Indication: ABDOMINAL DISCOMFORT
     Dosage: 2 DF, QD
     Route: 048
  3. GARDENAL [Concomitant]
     Active Substance: PHENOBARBITAL
     Indication: DISTURBANCE IN ATTENTION
     Dosage: 0.5 DF, QD
     Route: 048
  4. FORASEQ [Suspect]
     Active Substance: BUDESONIDE\FORMOTEROL FUMARATE
     Indication: CYSTIC FIBROSIS
     Dosage: 2 DF, QD
     Route: 055
     Dates: start: 201908
  5. APROZIDE [Concomitant]
     Active Substance: HYDROCHLOROTHIAZIDE\IRBESARTAN
     Indication: BLOOD PRESSURE ABNORMAL
     Dosage: 2 DF, QD
     Route: 048

REACTIONS (6)
  - Cough [Unknown]
  - Product dispensing error [Unknown]
  - Drug ineffective [Unknown]
  - Malaise [Unknown]
  - Off label use [Unknown]
  - Cystic fibrosis [Unknown]
